FAERS Safety Report 10042524 (Version 6)
Quarter: 2014Q2

REPORT INFORMATION
  Report Type: Spontaneous
  Country: US (occurrence: US)
  Receive Date: 20140327
  Receipt Date: 20140613
  Transmission Date: 20141212
  Serious: Yes (Hospitalization)
  Sender: FDA-Public Use
  Company Number: CHPA2014US004341

PATIENT
  Age: 60 Year
  Sex: Female

DRUGS (8)
  1. PREVACID 24HR 15MG [Suspect]
     Indication: GASTROOESOPHAGEAL REFLUX DISEASE
     Dosage: 2 DF, UNK
     Route: 048
  2. PREVACID 24HR 15MG [Suspect]
     Indication: INCORRECT DOSE ADMINISTERED
  3. PREVACID 24HR 15MG [Suspect]
     Indication: INCORRECT DRUG ADMINISTRATION DURATION
  4. PREVACID 24HR 15MG [Suspect]
     Indication: OFF LABEL USE
  5. COUMADIN//COUMARIN [Concomitant]
  6. PRILOSEC [Concomitant]
  7. PROTONIX [Concomitant]
  8. BAYER ASPIRIN [Concomitant]

REACTIONS (2)
  - Pulmonary hypertension [Recovering/Resolving]
  - Pulmonary oedema [Recovering/Resolving]
